FAERS Safety Report 5091279-4 (Version None)
Quarter: 2006Q3

REPORT INFORMATION
  Report Type: 
  Country: None (occurrence: None)
  Receive Date: 20060829
  Receipt Date: 20060824
  Transmission Date: 20061208
  Serious: Yes (Death)
  Sender: FDA-Public Use
  Company Number: FR-AVENTIS-200612934FR

PATIENT
  Age: 67 Year
  Sex: Male
  Weight: 43 kg

DRUGS (3)
  1. ARAVA [Suspect]
     Indication: POLYARTHRITIS
     Route: 048
     Dates: start: 20060518, end: 20060807
  2. TRIFLUCAN [Suspect]
     Indication: LOWER RESPIRATORY TRACT INFECTION FUNGAL
     Route: 042
     Dates: start: 20060804, end: 20060804
  3. TRIFLUCAN [Suspect]
     Route: 042
     Dates: start: 20060805, end: 20060807

REACTIONS (10)
  - ALANINE AMINOTRANSFERASE INCREASED [None]
  - ASPARTATE AMINOTRANSFERASE INCREASED [None]
  - BRONCHITIS [None]
  - CYTOLYTIC HEPATITIS [None]
  - ESCHERICHIA INFECTION [None]
  - HEPATITIS [None]
  - LOWER RESPIRATORY TRACT INFECTION FUNGAL [None]
  - MALNUTRITION [None]
  - STREPTOCOCCAL INFECTION [None]
  - SUPERINFECTION [None]
